FAERS Safety Report 9213340 (Version 2)
Quarter: 2013Q4

REPORT INFORMATION
  Report Type: Report from Study
  Country: BR (occurrence: BR)
  Receive Date: 20130405
  Receipt Date: 20131022
  Transmission Date: 20140711
  Serious: Yes (Other)
  Sender: FDA-Public Use
  Company Number: PHHY2013BR032774

PATIENT
  Age: 60 Year
  Sex: Male

DRUGS (3)
  1. DIOVAN AMLO FIX [Suspect]
     Indication: HYPERTENSION
     Dosage: 2 DF, (VALSARTAN 160 MG, AMLODIPINE 5 MG) PER DAY
     Route: 048
     Dates: start: 2009
  2. DIOVAN AMLO FIX [Suspect]
     Dosage: 3 DF, (VALSARTAN 160 MG, AMLODIPINE 5 MG) PER DAY
     Route: 048
  3. DIOVAN AMLO FIX [Suspect]
     Dosage: 1 DF, (VALSARTAN 160 MG, AMLODIPINE 5 MG) PER DAY
     Route: 048

REACTIONS (6)
  - Proteinuria [Not Recovered/Not Resolved]
  - Agitation [Not Recovered/Not Resolved]
  - Nervousness [Not Recovered/Not Resolved]
  - Irritability [Not Recovered/Not Resolved]
  - Local swelling [Recovered/Resolved]
  - Blood pressure inadequately controlled [Not Recovered/Not Resolved]
